FAERS Safety Report 22634508 (Version 1)
Quarter: 2023Q2

REPORT INFORMATION
  Report Type: Spontaneous
  Country: CN (occurrence: CN)
  Receive Date: 20230623
  Receipt Date: 20230623
  Transmission Date: 20230721
  Serious: Yes (Hospitalization, Other)
  Sender: FDA-Public Use
  Company Number: CN-BEH-2023160047

PATIENT
  Age: 78 Year
  Sex: Male
  Weight: 60 kg

DRUGS (3)
  1. ALBURX [Suspect]
     Active Substance: ALBUMIN HUMAN
     Indication: Supplementation therapy
     Dosage: 100 MILLILITER, QD
     Route: 041
     Dates: start: 20230527, end: 20230606
  2. ALBURX [Suspect]
     Active Substance: ALBUMIN HUMAN
     Indication: Hypoalbuminaemia
  3. IBUPROFEN [Concomitant]
     Active Substance: IBUPROFEN
     Dosage: 15 MILLILITER
     Route: 050

REACTIONS (7)
  - Chills [Recovering/Resolving]
  - Hyperpyrexia [Recovering/Resolving]
  - Tachypnoea [Recovering/Resolving]
  - Coma [Recovering/Resolving]
  - Sputum increased [Recovering/Resolving]
  - Respiratory tract infection [Unknown]
  - Infection [Unknown]

NARRATIVE: CASE EVENT DATE: 20230527
